FAERS Safety Report 25864594 (Version 1)
Quarter: 2025Q3

REPORT INFORMATION
  Report Type: Spontaneous
  Country: ZA (occurrence: ZA)
  Receive Date: 20250930
  Receipt Date: 20250930
  Transmission Date: 20251020
  Serious: Yes (Other)
  Sender: PFIZER
  Company Number: ZA-PFIZER INC-PV202500116430

PATIENT
  Age: 46 Year
  Sex: Female
  Weight: 75.9 kg

DRUGS (4)
  1. SULFASALAZINE [Suspect]
     Active Substance: SULFASALAZINE
     Dosage: UNK, 2X/DAY
     Dates: start: 202506, end: 202507
  2. METHOTREXATE [Concomitant]
     Active Substance: METHOTREXATE
     Dates: start: 2024
  3. CHLOROQUINE [Concomitant]
     Active Substance: CHLOROQUINE
     Dates: start: 2024, end: 202501
  4. MELOXICA [Concomitant]
     Dates: start: 202405

REACTIONS (1)
  - Drug-induced liver injury [Unknown]
